FAERS Safety Report 7752806-9 (Version None)
Quarter: 2011Q3

REPORT INFORMATION
  Report Type: 
  Country: None (occurrence: None)
  Receive Date: 20110915
  Receipt Date: 20110906
  Transmission Date: 20111222
  Serious: Yes (Other)
  Sender: FDA-Public Use
  Company Number: US-UCBSA-039875

PATIENT
  Sex: Female

DRUGS (3)
  1. CIMZIA [Suspect]
     Route: 058
     Dates: end: 20110101
  2. FLAGYL [Concomitant]
  3. CIMZIA [Suspect]
     Route: 058
     Dates: start: 20110101

REACTIONS (4)
  - CROHN'S DISEASE [None]
  - RECTAL ABSCESS [None]
  - ANAL FISTULA [None]
  - HAEMORRHOIDS [None]
